FAERS Safety Report 4600823-X (Version None)
Quarter: 2005Q1

REPORT INFORMATION
  Report Type: 
  Country: None (occurrence: None)
  Receive Date: 20050304
  Receipt Date: 20050218
  Transmission Date: 20050727
  Serious: Yes (Death)
  Sender: FDA-Public Use
  Company Number: 2005EU000301

PATIENT
  Age: 10 Month
  Sex: 0

DRUGS (4)
  1. PROGRAF [Suspect]
     Indication: LIVER TRANSPLANT
  2. PREDNISONE [Concomitant]
  3. MYCOPHENOLATE MOFETIL (MYCOPHENOLATE MOFETIL) [Concomitant]
  4. ANTITHYMOCYTE IMMUNOGLOBULIN (ANTITHYMOCYTE IMMUNOGLOBULIN) [Concomitant]

REACTIONS (8)
  - ACUTE RESPIRATORY DISTRESS SYNDROME [None]
  - CYSTITIS HAEMORRHAGIC [None]
  - DIARRHOEA [None]
  - ENCEPHALITIS [None]
  - HEPATITIS [None]
  - MULTI-ORGAN FAILURE [None]
  - NEPHRITIS [None]
  - SEPSIS [None]
